FAERS Safety Report 11846671 (Version 1)
Quarter: 2015Q4

REPORT INFORMATION
  Report Type: Spontaneous
  Country: US (occurrence: US)
  Receive Date: 20151217
  Receipt Date: 20151217
  Transmission Date: 20160305
  Serious: No
  Sender: FDA-Public Use
  Company Number: US-ROCHE-1507166

PATIENT
  Age: 68 Year
  Sex: Female

DRUGS (2)
  1. TAMIFLU [Suspect]
     Active Substance: OSELTAMIVIR PHOSPHATE
     Indication: INFLUENZA
     Route: 065
     Dates: start: 20141210
  2. PROTONIX (UNITED STATES) [Concomitant]

REACTIONS (2)
  - Gastrooesophageal reflux disease [Unknown]
  - Ear pruritus [Recovering/Resolving]

NARRATIVE: CASE EVENT DATE: 20141210
